FAERS Safety Report 6849742-9 (Version None)
Quarter: 2010Q3

REPORT INFORMATION
  Report Type: 
  Country: None (occurrence: None)
  Receive Date: 20100716
  Receipt Date: 20071004
  Transmission Date: 20110219
  Serious: No
  Sender: FDA-Public Use
  Company Number: US-PFIZER INC-2007084679

PATIENT
  Sex: Female
  Weight: 70.4 kg

DRUGS (8)
  1. CHANTIX [Suspect]
     Indication: SMOKING CESSATION THERAPY
     Dates: start: 20070913
  2. ATENOLOL [Concomitant]
  3. SYNTHROID [Concomitant]
  4. NAPROXEN [Concomitant]
  5. DARIFENACIN HYDROBROMIDE [Concomitant]
     Indication: URINARY TRACT DISORDER
  6. FOSAMAX [Concomitant]
  7. CITALOPRAM HYDROBROMIDE [Concomitant]
  8. SIMVASTATIN [Concomitant]
     Indication: BLOOD CHOLESTEROL INCREASED

REACTIONS (3)
  - DECREASED APPETITE [None]
  - HEADACHE [None]
  - NAUSEA [None]
